FAERS Safety Report 11131759 (Version 1)
Quarter: 2015Q2

REPORT INFORMATION
  Report Type: Spontaneous
  Country: FR (occurrence: None)
  Receive Date: 20150520
  Receipt Date: 20150520
  Transmission Date: 20150821
  Serious: Yes (Hospitalization)
  Sender: FDA-Public Use
  Company Number: 2015AMD00072

PATIENT
  Age: 70 Year
  Sex: Female

DRUGS (9)
  1. ONBREZ BREEZHALER (INDACATEROL) [Suspect]
     Active Substance: INDACATEROL
     Dates: start: 20150311, end: 20150320
  2. SERTRALINE HYDROCHLORIDE. [Concomitant]
     Active Substance: SERTRALINE HYDROCHLORIDE
  3. ZOLPIDEM TARTRATE. [Concomitant]
     Active Substance: ZOLPIDEM TARTRATE
  4. ZENTEL (ALBENDAZOLE) TABLET [Suspect]
     Active Substance: ALBENDAZOLE
     Route: 048
     Dates: start: 201502, end: 20150312
  5. AERIUS [Concomitant]
     Active Substance: DESLORATADINE
  6. TAHOR [Concomitant]
     Active Substance: ATORVASTATIN CALCIUM
  7. DAFALGAN CODEINE (PARACETAMOL AND HEMIHYDRATE CODEINE) [Concomitant]
  8. BROMAZEPAM [Concomitant]
     Active Substance: BROMAZEPAM
  9. PARACETAMOL [Concomitant]
     Active Substance: ACETAMINOPHEN

REACTIONS (1)
  - Hypersensitivity vasculitis [None]

NARRATIVE: CASE EVENT DATE: 20150318
